FAERS Safety Report 14610182 (Version 2)
Quarter: 2018Q2

REPORT INFORMATION
  Report Type: Report from Study
  Country: CA (occurrence: CA)
  Receive Date: 20180307
  Receipt Date: 20180620
  Transmission Date: 20180711
  Serious: Yes (Other)
  Sender: FDA-Public Use
  Company Number: CA-TAKEDA-2018MPI002221

PATIENT
  Age: 52 Year
  Sex: Female

DRUGS (11)
  1. POMALYST [Concomitant]
     Active Substance: POMALIDOMIDE
     Dosage: 2 MG, UNK
     Dates: start: 20171013
  2. EPREX [Concomitant]
     Active Substance: ERYTHROPOIETIN
     Dosage: UNK UNK, 1/WEEK
     Dates: start: 20171003
  3. POMALYST [Concomitant]
     Active Substance: POMALIDOMIDE
     Dosage: 1 MG, UNK
     Dates: start: 20171110
  4. IXAZOMIB [Suspect]
     Active Substance: IXAZOMIB
     Indication: PLASMA CELL MYELOMA
     Dosage: 2.3 MG, UNK
     Route: 048
     Dates: start: 20171110
  5. ACETYLSALICYLIC ACID [Suspect]
     Active Substance: ASPIRIN
     Indication: PRODUCT USED FOR UNKNOWN INDICATION
     Dosage: 81 MG, QD
     Route: 065
     Dates: start: 20171013, end: 20171031
  6. SEPTRA DS [Concomitant]
     Active Substance: SULFAMETHOXAZOLE\TRIMETHOPRIM
     Dosage: UNK UNK, BID
  7. PREDNISONE. [Concomitant]
     Active Substance: PREDNISONE
     Dosage: 50 MG, UNK
     Dates: start: 20180104
  8. DEXAMETHASONE. [Suspect]
     Active Substance: DEXAMETHASONE
     Indication: PLASMA CELL MYELOMA
     Dosage: 40 MG, 1/WEEK
     Route: 065
     Dates: start: 20171013
  9. POMALYST [Concomitant]
     Active Substance: POMALIDOMIDE
     Dosage: UNK
     Dates: start: 20180111
  10. ACETYLSALICYLIC ACID [Suspect]
     Active Substance: ASPIRIN
     Dosage: 81 MG, QD
     Route: 065
     Dates: start: 20171106
  11. CLARITHROMYCIN. [Suspect]
     Active Substance: CLARITHROMYCIN
     Indication: PRODUCT USED FOR UNKNOWN INDICATION
     Dosage: 500 MG, BID
     Route: 065

REACTIONS (6)
  - Diarrhoea [Not Recovered/Not Resolved]
  - Arthritis [Unknown]
  - Off label use [Unknown]
  - Hepatic mass [Unknown]
  - Plasma cell myeloma [Unknown]
  - Epistaxis [Recovered/Resolved]
